FAERS Safety Report 19804798 (Version 1)
Quarter: 2021Q3

REPORT INFORMATION
  Report Type: Spontaneous
  Country: US (occurrence: US)
  Receive Date: 20210908
  Receipt Date: 20210908
  Transmission Date: 20211014
  Serious: Yes (Other)
  Sender: FDA-Public Use
  Company Number: US-PFIZER INC-202101144973

PATIENT
  Sex: Male

DRUGS (5)
  1. NEURONTIN [Suspect]
     Active Substance: GABAPENTIN
     Dosage: UNK
  2. CLEOCIN [Suspect]
     Active Substance: CLINDAMYCIN PHOSPHATE
     Dosage: UNK
  3. GABAPENTIN. [Suspect]
     Active Substance: GABAPENTIN
     Dosage: UNK
  4. ALDACTONE [Suspect]
     Active Substance: SPIRONOLACTONE
     Dosage: UNK
  5. PROTONIX [Suspect]
     Active Substance: PANTOPRAZOLE SODIUM
     Dosage: UNK

REACTIONS (9)
  - Neoplasm malignant [Unknown]
  - Hepatitis C [Unknown]
  - Neuralgia [Unknown]
  - Hepatic cirrhosis [Unknown]
  - Blood pressure abnormal [Unknown]
  - Chronic obstructive pulmonary disease [Unknown]
  - Haemorrhage [Unknown]
  - Peripheral swelling [Unknown]
  - COVID-19 [Unknown]
